FAERS Safety Report 17356770 (Version 1)
Quarter: 2020Q1

REPORT INFORMATION
  Report Type: Spontaneous
  Country: US (occurrence: US)
  Receive Date: 20200131
  Receipt Date: 20200131
  Transmission Date: 20200409
  Serious: No
  Sender: FDA-Public Use
  Company Number: US-PERRIGO-19US005889

PATIENT
  Age: 32 Year
  Sex: Female
  Weight: 58.96 kg

DRUGS (1)
  1. IBUPROFEN AND DIPHENHYDRAMINE CITRATE [Suspect]
     Active Substance: DIPHENHYDRAMINE CITRATE\IBUPROFEN
     Indication: PRODUCT NAME CONFUSION
     Dosage: 3 TABLETS, SINGLE AT 1100
     Route: 048
     Dates: start: 20190510, end: 20190510

REACTIONS (3)
  - Somnolence [Not Recovered/Not Resolved]
  - Product name confusion [Recovered/Resolved]
  - Expired product administered [Recovered/Resolved]

NARRATIVE: CASE EVENT DATE: 20190510
